FAERS Safety Report 23053597 (Version 4)
Quarter: 2024Q3

REPORT INFORMATION
  Report Type: Spontaneous
  Country: US (occurrence: US)
  Receive Date: 20231011
  Receipt Date: 20240912
  Transmission Date: 20241017
  Serious: Yes (Other)
  Sender: BRISTOL MYERS SQUIBB
  Company Number: US-BRISTOL-MYERS SQUIBB COMPANY-2023-144095

PATIENT
  Age: 54 Year
  Sex: Male

DRUGS (2)
  1. REVLIMID [Suspect]
     Active Substance: LENALIDOMIDE
     Indication: Plasma cell myeloma
     Dosage: 14 DAYS ON 7 DAYS OFF
     Route: 048
  2. REVLIMID [Suspect]
     Active Substance: LENALIDOMIDE
     Dosage: FREQUENCY: QD FOR 21 DAYS ON AND 7 DAYS OFF/QD FOR 3 WEEKS ON, 1 WEEK OFF
     Route: 048

REACTIONS (8)
  - Pain [Unknown]
  - COVID-19 [Unknown]
  - Dry skin [Unknown]
  - Off label use [Unknown]
  - Sperm concentration decreased [Unknown]
  - Product distribution issue [Unknown]
  - Therapy interrupted [Unknown]
  - Sperm concentration zero [Unknown]

NARRATIVE: CASE EVENT DATE: 20231205
